FAERS Safety Report 6540065-4 (Version None)
Quarter: 2010Q1

REPORT INFORMATION
  Report Type: 
  Country: None (occurrence: None)
  Receive Date: 20100115
  Receipt Date: 20100111
  Transmission Date: 20100710
  Serious: Yes (Hospitalization, Other)
  Sender: FDA-Public Use
  Company Number: DE-ABBOTT-09P-062-0610473-00

PATIENT
  Sex: Female
  Weight: 71 kg

DRUGS (5)
  1. HUMIRA [Suspect]
     Indication: RHEUMATOID ARTHRITIS
     Route: 058
     Dates: start: 20081101, end: 20091101
  2. CORTISONE [Concomitant]
     Indication: RHEUMATOID ARTHRITIS
  3. ANALGETICS (NOT SPECIFIED) [Concomitant]
     Indication: PAIN
  4. METHOTREXATE [Concomitant]
     Indication: RHEUMATOID ARTHRITIS
     Dates: start: 19960101
  5. DICLOFENAC [Concomitant]
     Indication: PAIN

REACTIONS (4)
  - LACRIMATION INCREASED [None]
  - PAIN [None]
  - POLYNEUROPATHY [None]
  - SICCA SYNDROME [None]
